FAERS Safety Report 4561320-3 (Version None)
Quarter: 2005Q1

REPORT INFORMATION
  Report Type: 
  Country: None (occurrence: None)
  Receive Date: 20050126
  Receipt Date: 20050118
  Transmission Date: 20050727
  Serious: Yes (Other)
  Sender: FDA-Public Use
  Company Number: PHBS2005GB01270

PATIENT
  Age: 46 Year
  Sex: Female

DRUGS (1)
  1. TERBINAFINE HCL [Suspect]
     Indication: NAIL TINEA
     Route: 048

REACTIONS (5)
  - BIOPSY SKIN ABNORMAL [None]
  - BLOOD IMMUNOGLOBULIN M INCREASED [None]
  - CUTANEOUS LUPUS ERYTHEMATOSUS [None]
  - HAEMOLYTIC ANAEMIA [None]
  - PHOTOSENSITIVITY REACTION [None]
